FAERS Safety Report 13674342 (Version 1)
Quarter: 2017Q2

REPORT INFORMATION
  Report Type: Spontaneous
  Country: US (occurrence: US)
  Receive Date: 20170621
  Receipt Date: 20170621
  Transmission Date: 20170830
  Serious: Yes (Other)
  Sender: FDA-Public Use
  Company Number: US-LPDUSPRD-20170808

PATIENT
  Age: 48 Year
  Sex: Male

DRUGS (7)
  1. NOREPINEPHRINE. [Suspect]
     Active Substance: NOREPINEPHRINE
     Dosage: DOSE NOT PROVIDED
     Route: 065
  2. DEMECLOCYCLINE [Suspect]
     Active Substance: DEMECLOCYCLINE
     Dosage: DOSE NOT PROVIDED
     Route: 065
  3. VASOPRESSIN INJECTION, USP (0410-10) [Suspect]
     Active Substance: VASOPRESSIN
     Dosage: DOSE NOT PROVIDED
     Route: 042
  4. DEXTROSE. [Concomitant]
     Active Substance: DEXTROSE
     Dosage: DOSE NOT PROVIDED
     Route: 040
  5. HYPERTONIC SALINE 3% [Suspect]
     Active Substance: SODIUM CHLORIDE
     Dosage: DOSE NOT PROVIDED
     Route: 065
  6. DESMOPRESSIN [Concomitant]
     Active Substance: DESMOPRESSIN
     Dosage: 5 MCG
     Route: 065
  7. PHENYLEPHRINE HCL [Suspect]
     Active Substance: PHENYLEPHRINE HYDROCHLORIDE
     Dosage: DOSE NOT PROVIDED
     Route: 065

REACTIONS (4)
  - Cardiac failure [Unknown]
  - Mental status changes [Unknown]
  - Diabetes insipidus [Recovered/Resolved]
  - Atrial fibrillation [Unknown]
